FAERS Safety Report 10199186 (Version 1)
Quarter: 2014Q2

REPORT INFORMATION
  Report Type: Spontaneous
  Country: US (occurrence: US)
  Receive Date: 20140527
  Receipt Date: 20140527
  Transmission Date: 20141212
  Serious: Yes (Other)
  Sender: FDA-Public Use
  Company Number: US-PFIZER INC-2014142551

PATIENT
  Age: 57 Year
  Sex: Female

DRUGS (11)
  1. LYRICA [Suspect]
     Dosage: 150 MG, 3X/DAY
     Route: 048
  2. ZOLOFT [Suspect]
     Dosage: UNK
  3. METOPROLOL [Concomitant]
     Dosage: UNK
  4. HCTZ [Concomitant]
     Dosage: UNK
  5. LEVOTHYROXINE [Concomitant]
     Dosage: UNK
  6. TIZANIDINE [Concomitant]
     Dosage: UNK
  7. NORCO [Concomitant]
     Dosage: UNK
  8. WELLBUTRIN [Concomitant]
     Dosage: UNK
  9. BUSPIRON [Concomitant]
     Dosage: UNK
  10. SIMVASTATIN [Concomitant]
     Dosage: UNK
  11. HYDROXYZINE HYDROCHLORIDE [Concomitant]
     Dosage: UNK

REACTIONS (3)
  - Back disorder [Unknown]
  - Back pain [Unknown]
  - Pain in extremity [Unknown]
